FAERS Safety Report 6065603-X (Version None)
Quarter: 2009Q1

REPORT INFORMATION
  Report Type: 
  Country: None (occurrence: None)
  Receive Date: 20090204
  Receipt Date: 20090128
  Transmission Date: 20090719
  Serious: Yes (Other)
  Sender: FDA-Public Use
  Company Number: CA-ASTRAZENECA-2001UW07564

PATIENT
  Sex: Female
  Weight: 43.5 kg

DRUGS (1)
  1. EMLA [Suspect]
     Indication: SURGERY
     Route: 061
     Dates: start: 20010626, end: 20010626

REACTIONS (11)
  - ACCIDENTAL OVERDOSE [None]
  - ANXIETY [None]
  - CYANOSIS [None]
  - DEPRESSED LEVEL OF CONSCIOUSNESS [None]
  - DIZZINESS [None]
  - DYSPNOEA [None]
  - HYPOAESTHESIA ORAL [None]
  - METHAEMOGLOBINAEMIA [None]
  - OXYGEN SATURATION DECREASED [None]
  - PERIPHERAL ISCHAEMIA [None]
  - TONGUE DISORDER [None]
